FAERS Safety Report 4507607-1 (Version None)
Quarter: 2004Q4

REPORT INFORMATION
  Report Type: 
  Country: None (occurrence: None)
  Receive Date: 20040928
  Receipt Date: 20040819
  Transmission Date: 20050328
  Serious: Yes (Hospitalization)
  Sender: FDA-Public Use
  Company Number: 04P-163-0271328-00

PATIENT
  Age: 66 Year
  Sex: Female
  Weight: 59.8748 kg

DRUGS (14)
  1. HUMIRA [Suspect]
     Indication: RHEUMATOID ARTHRITIS
     Dosage: 40 MG, 1 IN 2 WK, SUBCUTANEOUS
     Route: 058
     Dates: start: 20040603
  2. LEVOTHYROXINE SODIUM [Concomitant]
  3. CELECOXIB [Concomitant]
  4. METHOTREXATE SODIUM [Concomitant]
  5. FOLIC ACID [Concomitant]
  6. KARVEA HCT [Concomitant]
  7. PREDNISONE [Concomitant]
  8. GABAPENTIN [Concomitant]
  9. POTASSIUM CHLORIDE [Concomitant]
  10. AMITRIPTYLINE HCL [Concomitant]
  11. AMLODIPINE BESYLATE [Concomitant]
  12. LEXAPRO [Concomitant]
  13. BUPROPION HYDROCHLORIDE [Concomitant]
  14. ALENDRONATE SODIUM [Concomitant]

REACTIONS (1)
  - CELLULITIS [None]
